FAERS Safety Report 13243842 (Version 1)
Quarter: 2017Q1

REPORT INFORMATION
  Report Type: Report from Study
  Country: JP (occurrence: JP)
  Receive Date: 20170216
  Receipt Date: 20170216
  Transmission Date: 20170428
  Serious: Yes (Hospitalization)
  Sender: FDA-Public Use
  Company Number: JP-B.I. PHARMACEUTICALS,INC./RIDGEFIELD-2015-BI-52909BI

PATIENT
  Age: 64 Year
  Sex: Male
  Weight: 56 kg

DRUGS (3)
  1. PRORANON [Concomitant]
     Indication: CONJUNCTIVITIS ALLERGIC
     Dosage: STRENGTH AND UNIT DOSE: 0.1%; DAILY DOSE: ADEQUATE DOSE
     Route: 050
     Dates: start: 20141017
  2. LINAGLIPTIN [Suspect]
     Active Substance: LINAGLIPTIN
     Indication: TYPE 2 DIABETES MELLITUS
     Route: 048
     Dates: start: 20150706, end: 20150924
  3. KALLIDINOGENASE [Suspect]
     Active Substance: KALLIDINOGENASE
     Indication: RETINAL VASCULAR DISORDER
     Route: 048
     Dates: start: 20140905, end: 20140924

REACTIONS (1)
  - Gastric cancer [Recovered/Resolved]

NARRATIVE: CASE EVENT DATE: 20150928
